FAERS Safety Report 20910131 (Version 2)
Quarter: 2022Q2

REPORT INFORMATION
  Report Type: Spontaneous
  Country: US (occurrence: US)
  Receive Date: 20220603
  Receipt Date: 20220622
  Transmission Date: 20220721
  Serious: No
  Sender: FDA-Public Use
  Company Number: US-BRISTOL-MYERS SQUIBB COMPANY-2022-043999

PATIENT
  Age: 82 Year
  Sex: Male

DRUGS (2)
  1. POMALYST [Suspect]
     Active Substance: POMALIDOMIDE
     Indication: Plasma cell myeloma
     Dosage: EVERYDAY, 21 DAYS ON 7 DAYS OFF
     Route: 048
     Dates: start: 20170802
  2. POMALYST [Suspect]
     Active Substance: POMALIDOMIDE
     Dosage: EVERYDAY, 21 DAYS ON 7 DAYS OFF
     Route: 048
     Dates: start: 20220420

REACTIONS (1)
  - Lower respiratory tract infection [Recovered/Resolved]
